FAERS Safety Report 6724943-9 (Version None)
Quarter: 2010Q2

REPORT INFORMATION
  Report Type: 
  Country: None (occurrence: None)
  Receive Date: 20100514
  Receipt Date: 20100505
  Transmission Date: 20101027
  Serious: Yes (Hospitalization)
  Sender: FDA-Public Use
  Company Number: 2007BI018798

PATIENT
  Age: 38 Year
  Sex: Female
  Weight: 51 kg

DRUGS (1)
  1. AVONEX [Suspect]
     Indication: MULTIPLE SCLEROSIS
     Route: 030
     Dates: start: 20010101

REACTIONS (8)
  - FEMALE STERILISATION [None]
  - MULTIPLE SCLEROSIS RELAPSE [None]
  - PUPIL FIXED [None]
  - RAYNAUD'S PHENOMENON [None]
  - SCOLIOSIS [None]
  - STATUS MIGRAINOSUS [None]
  - VITAMIN B1 DEFICIENCY [None]
  - VITAMIN B12 DEFICIENCY [None]
